FAERS Safety Report 26130386 (Version 1)
Quarter: 2025Q4

REPORT INFORMATION
  Report Type: Spontaneous
  Country: US (occurrence: US)
  Receive Date: 20251208
  Receipt Date: 20251208
  Transmission Date: 20260118
  Serious: No
  Sender: BIOCRYST PHARMACEUTICALS
  Company Number: US-BIOCRYST PHARMACEUTICALS, INC.-2025BCR01531

PATIENT
  Age: 63 Year

DRUGS (1)
  1. BEROTRALSTAT [Suspect]
     Active Substance: BEROTRALSTAT
     Indication: Hereditary angioedema

REACTIONS (1)
  - Nasopharyngitis [Not Recovered/Not Resolved]
